FAERS Safety Report 20559623 (Version 1)
Quarter: 2022Q1

REPORT INFORMATION
  Report Type: Spontaneous
  Country: US (occurrence: None)
  Receive Date: 20220304
  Receipt Date: 20220304
  Transmission Date: 20220423
  Serious: Yes (Hospitalization)
  Sender: FDA-Public Use
  Company Number: None

PATIENT
  Age: 82 Year
  Sex: Male

DRUGS (11)
  1. AMBRISENTAN [Suspect]
     Active Substance: AMBRISENTAN
     Indication: Pulmonary hypertension
     Dosage: FREQUENCY : DAILY;?
     Route: 048
     Dates: start: 20220105
  2. TADALAFIL [Concomitant]
     Active Substance: TADALAFIL
  3. LASIX [Concomitant]
     Active Substance: FUROSEMIDE
  4. ASPIRIN [Concomitant]
     Active Substance: ASPIRIN
  5. Simivastatin [Concomitant]
  6. METFORMIN [Concomitant]
     Active Substance: METFORMIN HYDROCHLORIDE
  7. ACARBOSE [Concomitant]
     Active Substance: ACARBOSE
  8. SPIRIVA RESPIMAT [Concomitant]
     Active Substance: TIOTROPIUM BROMIDE
  9. OMEPRAZOLE [Concomitant]
     Active Substance: OMEPRAZOLE
  10. PROBIOTICS NOS [Concomitant]
     Active Substance: PROBIOTICS NOS
  11. Centrum Silver MVI [Concomitant]

REACTIONS (5)
  - Chronic obstructive pulmonary disease [None]
  - Oedema peripheral [None]
  - Type 2 diabetes mellitus [None]
  - Hypoxia [None]
  - Cardiac failure [None]

NARRATIVE: CASE EVENT DATE: 20220125
